FAERS Safety Report 8414244-5 (Version None)
Quarter: 2012Q2

REPORT INFORMATION
  Report Type: 
  Country: None (occurrence: None)
  Receive Date: 20120605
  Receipt Date: 20120531
  Transmission Date: 20120825
  Serious: Yes (Life-Threatening, Other)
  Sender: FDA-Public Use
  Company Number: GB-PFIZER INC-2012130963

PATIENT
  Age: 66 Year
  Sex: Female
  Weight: 80 kg

DRUGS (7)
  1. LANSOPRAZOLE [Concomitant]
  2. METFORMIN [Concomitant]
  3. VARENICLINE TARTRATE [Suspect]
     Indication: SMOKING CESSATION THERAPY
     Dosage: 1 MG, UNK
     Route: 048
     Dates: start: 20120505, end: 20120519
  4. RAMIPRIL [Concomitant]
  5. ATORVASTATIN [Concomitant]
  6. GLIMEPIRIDE [Concomitant]
  7. CLOPIDOGREL [Concomitant]

REACTIONS (4)
  - OEDEMA PERIPHERAL [None]
  - LIP SWELLING [None]
  - ANGIOEDEMA [None]
  - EYELID OEDEMA [None]
